FAERS Safety Report 7457986-0 (Version None)
Quarter: 2011Q2

REPORT INFORMATION
  Report Type: 
  Country: None (occurrence: None)
  Receive Date: 20110502
  Receipt Date: 20110502
  Transmission Date: 20111010
  Serious: Yes (Hospitalization)
  Sender: FDA-Public Use
  Company Number: None

PATIENT
  Sex: Female
  Weight: 98.4 kg

DRUGS (8)
  1. PEG-L- ASPARAGINASE (PEGASPARGASE, ONCOPAR) [Suspect]
     Dosage: 10350 IU
     Dates: end: 20110324
  2. METHOTREXATE [Suspect]
     Dosage: 45 MG
     Dates: end: 20110318
  3. THIOGUANINE [Suspect]
     Dosage: 1680 MG
     Dates: end: 20110323
  4. CYCLOPHOSPHAMIDE [Suspect]
     Dosage: 2070 MG
     Dates: end: 20110310
  5. CYTARABINE [Suspect]
     Dosage: 1240 MG
     Dates: end: 20110321
  6. DOXORUBICIN HCL [Suspect]
     Dosage: 156 MG
     Dates: end: 20110210
  7. DEXAMETHASONE [Suspect]
     Dosage: 280 MG
     Dates: end: 20110216
  8. VINCRISTINE SULFATE [Suspect]
     Dosage: 8 MG
     Dates: end: 20110324

REACTIONS (9)
  - FLANK PAIN [None]
  - BODY TEMPERATURE INCREASED [None]
  - SUPRAPUBIC PAIN [None]
  - DYSURIA [None]
  - BLOOD URINE PRESENT [None]
  - BLOOD GLUCOSE INCREASED [None]
  - NAUSEA [None]
  - GLUCOSE URINE PRESENT [None]
  - CHILLS [None]
